FAERS Safety Report 5862820-6 (Version None)
Quarter: 2008Q3

REPORT INFORMATION
  Report Type: 
  Country: None (occurrence: None)
  Receive Date: 20080828
  Receipt Date: 20080818
  Transmission Date: 20090109
  Serious: Yes (Other)
  Sender: FDA-Public Use
  Company Number: FR-AMGEN-UK293503

PATIENT
  Age: 56 Year
  Sex: Female

DRUGS (4)
  1. KEPIVANCE [Suspect]
     Indication: MUCOSAL INFLAMMATION
     Dates: start: 20060119, end: 20060121
  2. KEPIVANCE [Suspect]
     Route: 042
     Dates: start: 20060126, end: 20060127
  3. MELPHALAN [Concomitant]
     Route: 065
  4. PLATELETS [Concomitant]

REACTIONS (10)
  - APLASIA [None]
  - DRUG ERUPTION [None]
  - DRUG INEFFECTIVE [None]
  - FACE OEDEMA [None]
  - GASTROINTESTINAL INFLAMMATION [None]
  - OEDEMA PERIPHERAL [None]
  - SKIN REACTION [None]
  - STOMATITIS [None]
  - TOXIC SKIN ERUPTION [None]
  - VOMITING [None]
